FAERS Safety Report 14327191 (Version 1)
Quarter: 2017Q4

REPORT INFORMATION
  Report Type: Spontaneous
  Country: US (occurrence: US)
  Receive Date: 20171227
  Receipt Date: 20171227
  Transmission Date: 20180321
  Serious: Yes (Hospitalization)
  Sender: FDA-Public Use
  Company Number: PHEH2017US041602

PATIENT
  Age: 68 Year
  Sex: Female

DRUGS (2)
  1. LETROZOL [Suspect]
     Active Substance: LETROZOLE
     Indication: BREAST CANCER
     Dosage: 25 MG, QD
     Route: 065
     Dates: start: 201507
  2. IBRANCE [Suspect]
     Active Substance: PALBOCICLIB
     Indication: BREAST CANCER
     Dosage: UNK
     Route: 065
     Dates: start: 20170605

REACTIONS (4)
  - Burning sensation [Not Recovered/Not Resolved]
  - Neuropathy peripheral [Not Recovered/Not Resolved]
  - Hypoaesthesia [Not Recovered/Not Resolved]
  - Paraesthesia [Not Recovered/Not Resolved]

NARRATIVE: CASE EVENT DATE: 201706
